FAERS Safety Report 7455301-X (Version None)
Quarter: 2011Q2

REPORT INFORMATION
  Report Type: 
  Country: None (occurrence: None)
  Receive Date: 20110503
  Receipt Date: 20110426
  Transmission Date: 20111010
  Serious: Yes (Hospitalization)
  Sender: FDA-Public Use
  Company Number: CL-BRISTOL-MYERS SQUIBB COMPANY-15592124

PATIENT
  Age: 77 Year
  Sex: Male
  Weight: 56 kg

DRUGS (3)
  1. CETUXIMAB [Suspect]
     Indication: GASTROOESOPHAGEAL CANCER
     Dosage: STRENGTH:5MG/ML RECENT DOSE:25FEB11, TOTAL INFUSION: 30
     Route: 042
     Dates: start: 20100806, end: 20110225
  2. XELODA [Suspect]
     Indication: GASTROOESOPHAGEAL CANCER
     Dosage: TABS 1ST DOSE IN CURRENT CYCLE:18FEB11 RECENT DOSE:02MAR11
     Route: 048
     Dates: start: 20100806, end: 20110302
  3. CISPLATIN [Suspect]
     Indication: GASTROOESOPHAGEAL CANCER
     Dosage: ON DAY 1 OF CYCLE
     Route: 042
     Dates: start: 20100806, end: 20100806

REACTIONS (1)
  - PULMONARY EMBOLISM [None]
